FAERS Safety Report 4556868-1 (Version None)
Quarter: 2005Q1

REPORT INFORMATION
  Report Type: 
  Country: None (occurrence: None)
  Receive Date: 20050119
  Receipt Date: 20050119
  Transmission Date: 20050727
  Serious: Yes (Hospitalization, Disabling)
  Sender: FDA-Public Use
  Company Number: None

PATIENT
  Age: 18 Year
  Sex: Female
  Weight: 54.4316 kg

DRUGS (4)
  1. ROCEPHIN [Suspect]
     Indication: DEHYDRATION
     Dosage: 2 GRAMS   EVERY 24 HOURS   INTRAVENOU
     Route: 042
     Dates: start: 20040211, end: 20040213
  2. ROCEPHIN [Suspect]
     Indication: PROPHYLAXIS
     Dosage: 2 GRAMS   EVERY 24 HOURS   INTRAVENOU
     Route: 042
     Dates: start: 20040211, end: 20040213
  3. SODIUM CHLORIDE [Concomitant]
  4. PEPCID [Concomitant]

REACTIONS (7)
  - ABASIA [None]
  - AMNESIA [None]
  - CONFUSIONAL STATE [None]
  - DEPRESSION [None]
  - EDUCATIONAL PROBLEM [None]
  - IMPAIRED WORK ABILITY [None]
  - TREMOR [None]
